FAERS Safety Report 6679688-0 (Version None)
Quarter: 2010Q2

REPORT INFORMATION
  Report Type: 
  Country: None (occurrence: None)
  Receive Date: 20100413
  Receipt Date: 20100406
  Transmission Date: 20101027
  Serious: Yes (Hospitalization)
  Sender: FDA-Public Use
  Company Number: US-ALLERGAN-1004499US

PATIENT
  Age: 3 Year
  Sex: Male
  Weight: 10 kg

DRUGS (2)
  1. BOTOX [Suspect]
     Indication: MUSCLE SPASTICITY
     Dosage: 200 UNITS, SINGLE
     Route: 030
     Dates: start: 20100329, end: 20100329
  2. PHENOL [Suspect]
     Indication: DRUG USE FOR UNKNOWN INDICATION
     Dosage: UNK
     Route: 030
     Dates: start: 20100329, end: 20100329

REACTIONS (9)
  - ASTHENIA [None]
  - BOTULISM [None]
  - DEPRESSED LEVEL OF CONSCIOUSNESS [None]
  - EYELID PTOSIS [None]
  - HYPOGLYCAEMIA [None]
  - HYPOPHAGIA [None]
  - HYPOTONIA [None]
  - LYMPHOEDEMA [None]
  - OEDEMA PERIPHERAL [None]
